FAERS Safety Report 19436178 (Version 1)
Quarter: 2021Q2

REPORT INFORMATION
  Report Type: Spontaneous
  Country: JP (occurrence: JP)
  Receive Date: 20210618
  Receipt Date: 20210618
  Transmission Date: 20210717
  Serious: Yes (Other)
  Sender: FDA-Public Use
  Company Number: JP-ASTRAZENECA-2021A527078

PATIENT
  Age: 67 Year
  Sex: Female

DRUGS (2)
  1. SYMBICORT [Suspect]
     Active Substance: BUDESONIDE\FORMOTEROL FUMARATE DIHYDRATE
     Indication: ASTHMA
     Dosage: 30 DOSES, DOSE AND FREQUENCY UNKNOWN UNKNOWN
     Route: 055
  2. FASENRA [Suspect]
     Active Substance: BENRALIZUMAB
     Indication: ASTHMA
     Dosage: DOSE UNKNOWN
     Route: 058

REACTIONS (5)
  - Breast cancer [Unknown]
  - Asthma [Recovered/Resolved]
  - Blood glucose increased [Unknown]
  - Urticaria [Unknown]
  - Osteonecrosis [Unknown]

NARRATIVE: CASE EVENT DATE: 2019
